FAERS Safety Report 7190782-0 (Version None)
Quarter: 2010Q4

REPORT INFORMATION
  Report Type: 
  Country: None (occurrence: None)
  Receive Date: 20101223
  Receipt Date: 20101215
  Transmission Date: 20110411
  Serious: Yes (Other)
  Sender: FDA-Public Use
  Company Number: ES-AMGEN-ESPSP2010009404

PATIENT

DRUGS (2)
  1. NPLATE [Suspect]
     Indication: THROMBOCYTOPENIA
     Dosage: 3 A?G/KG, QWK
     Route: 058
     Dates: start: 20090101
  2. NPLATE [Suspect]
     Dosage: UNK, 2 TIMES/WK

REACTIONS (2)
  - THROMBOCYTOPENIA [None]
  - THROMBOCYTOSIS [None]
